FAERS Safety Report 6326300-6 (Version None)
Quarter: 2009Q3

REPORT INFORMATION
  Report Type: 
  Country: None (occurrence: None)
  Receive Date: 20090820
  Receipt Date: 20090811
  Transmission Date: 20100115
  Serious: Yes (Hospitalization)
  Sender: FDA-Public Use
  Company Number: 321925

PATIENT
  Age: 79 Year
  Sex: Female
  Weight: 68 kg

DRUGS (3)
  1. SODIUM CHLORIDE [Suspect]
     Dosage: INTRAVENOUS (NOT OTHERWISE SPECIFIED)
     Route: 042
     Dates: start: 20090219, end: 20090707
  2. SWFI USP (STERILE WATER) [Suspect]
     Dosage: INTRAVENOUS
     Dates: start: 20090219, end: 20090707
  3. HEPARIN [Concomitant]

REACTIONS (2)
  - HEPATIC FAILURE [None]
  - HEPATITIS C [None]
